FAERS Safety Report 7730013-3 (Version None)
Quarter: 2011Q3

REPORT INFORMATION
  Report Type: 
  Country: None (occurrence: None)
  Receive Date: 20110901
  Receipt Date: 20110901
  Transmission Date: 20111222
  Serious: No
  Sender: FDA-Public Use
  Company Number: None

PATIENT
  Sex: Female
  Weight: 63.5036 kg

DRUGS (1)
  1. PROLIA [Suspect]
     Indication: OSTEOPOROSIS
     Dates: start: 20110627

REACTIONS (5)
  - PRURITUS [None]
  - BURNING SENSATION [None]
  - MYALGIA [None]
  - RASH [None]
  - ARTHRALGIA [None]
